FAERS Safety Report 9068527 (Version 1)
Quarter: 2013Q1

REPORT INFORMATION
  Report Type: Spontaneous
  Country: GB (occurrence: GB)
  Receive Date: 20130128
  Receipt Date: 20130128
  Transmission Date: 20140127
  Serious: Yes (Other)
  Sender: FDA-Public Use
  Company Number: GB-ROCHE-1179431

PATIENT
  Sex: Female
  Weight: 71 kg

DRUGS (1)
  1. ROACTEMRA [Suspect]
     Indication: RHEUMATOID ARTHRITIS
     Route: 042
     Dates: start: 20110526, end: 20121101

REACTIONS (3)
  - Renal cancer [Unknown]
  - Haematuria [Unknown]
  - Condition aggravated [Recovered/Resolved]
